FAERS Safety Report 8777409 (Version 2)
Quarter: 2012Q4

REPORT INFORMATION
  Report Type: 
  Country: DE (occurrence: IE)
  Receive Date: 20120911
  Receipt Date: 20120911
  Transmission Date: 20130627
  Serious: Yes (Hospitalization)
  Sender: FDA-Public Use
  Company Number: IE-BRISTOL-MYERS SQUIBB COMPANY-16928343

PATIENT
  Age: 84 Year
  Sex: Male

DRUGS (8)
  1. GLUCOPHAGE TABS 500 MG [Suspect]
     Indication: TYPE 2 DIABETES MELLITUS
     Route: 048
     Dates: start: 201007
  2. NUPRIN [Concomitant]
     Route: 048
     Dates: start: 201007
  3. LEVOTHYROXINE [Concomitant]
     Route: 048
     Dates: start: 2000
  4. ROSUVASTATIN [Concomitant]
     Route: 048
     Dates: start: 201007, end: 201208
  5. MIDON [Concomitant]
     Route: 048
     Dates: start: 201206
  6. GALFER [Concomitant]
     Route: 048
     Dates: start: 201111
  7. PARACETAMOL [Concomitant]
     Route: 048
     Dates: start: 201111
  8. OXYCONTIN [Concomitant]
     Route: 048
     Dates: start: 201111

REACTIONS (2)
  - Dysphagia [Not Recovered/Not Resolved]
  - General physical health deterioration [Unknown]
